FAERS Safety Report 19854134 (Version 1)
Quarter: 2021Q3

REPORT INFORMATION
  Report Type: Spontaneous
  Country: US (occurrence: US)
  Receive Date: 20210920
  Receipt Date: 20210920
  Transmission Date: 20211014
  Serious: No
  Sender: FDA-Public Use
  Company Number: US-LUPIN PHARMACEUTICALS INC.-2021-17438

PATIENT
  Age: 70 Year
  Sex: Female

DRUGS (4)
  1. HYDROXYCHLOROQUINE [Suspect]
     Active Substance: HYDROXYCHLOROQUINE
     Indication: COVID-19 PNEUMONIA
     Dosage: UNK
     Route: 065
  2. SARILUMAB [Suspect]
     Active Substance: SARILUMAB
     Indication: COVID-19 PNEUMONIA
     Dosage: RECEIVED ONE DOSE
     Route: 065
  3. SARILUMAB [Suspect]
     Active Substance: SARILUMAB
     Indication: INFLAMMATORY MARKER INCREASED
  4. CEFTRIAXONE. [Concomitant]
     Active Substance: CEFTRIAXONE
     Indication: PNEUMONIA ESCHERICHIA
     Dosage: UNK
     Route: 065

REACTIONS (1)
  - Off label use [Unknown]
